FAERS Safety Report 4390917-9 (Version None)
Quarter: 2004Q2

REPORT INFORMATION
  Report Type: 
  Country: None (occurrence: None)
  Receive Date: 20040630
  Receipt Date: 20040617
  Transmission Date: 20050107
  Serious: Yes (Death, Other)
  Sender: FDA-Public Use
  Company Number: 2004041173

PATIENT
  Age: 93 Year
  Sex: Male

DRUGS (1)
  1. LIPITOR [Suspect]
     Indication: BLOOD CHOLESTEROL INCREASED

REACTIONS (5)
  - ASTHENIA [None]
  - BLOOD DISORDER [None]
  - CARCINOMA [None]
  - DIALYSIS [None]
  - RENAL DISORDER [None]
